FAERS Safety Report 12088341 (Version 1)
Quarter: 2016Q1

REPORT INFORMATION
  Report Type: Spontaneous
  Country: US (occurrence: US)
  Receive Date: 20160218
  Receipt Date: 20160218
  Transmission Date: 20160526
  Serious: No
  Sender: FDA-Public Use
  Company Number: US-009507513-1601USA008349

PATIENT
  Age: 20 Year
  Sex: Female
  Weight: 63.5 kg

DRUGS (3)
  1. ZEMURON [Suspect]
     Active Substance: ROCURONIUM BROMIDE
     Indication: GENERAL ANAESTHESIA
     Dosage: 150 MG PROPOFOL AND 30 MG ROCURONIUM
  2. ZEMURON [Suspect]
     Active Substance: ROCURONIUM BROMIDE
     Dosage: ONLY 30 MG({0.5 MG/KG) ROCURONIUM WAS ADMINISTERED
  3. CRIXOFOL [Suspect]
     Active Substance: PROPOFOL
     Indication: GENERAL ANAESTHESIA
     Dosage: 150 MG PROPOFOL AND 30 MG ROCURONIUM

REACTIONS (1)
  - Exposure during pregnancy [Recovered/Resolved]
